FAERS Safety Report 25517410 (Version 1)
Quarter: 2025Q3

REPORT INFORMATION
  Report Type: Spontaneous
  Country: RS (occurrence: RS)
  Receive Date: 20250704
  Receipt Date: 20250704
  Transmission Date: 20251021
  Serious: Yes (Other)
  Sender: TEVA
  Company Number: RS-TEVA-VS-3346600

PATIENT
  Age: 40 Year
  Sex: Male
  Weight: 104 kg

DRUGS (1)
  1. CIPROFLOXACIN [Suspect]
     Active Substance: CIPROFLOXACIN
     Indication: Bursitis
     Route: 048
     Dates: start: 20250409, end: 20250413

REACTIONS (3)
  - Colitis ulcerative [Recovering/Resolving]
  - Constipation [Recovering/Resolving]
  - Haemorrhoids [Recovering/Resolving]

NARRATIVE: CASE EVENT DATE: 20250410
